FAERS Safety Report 18512356 (Version 4)
Quarter: 2023Q1

REPORT INFORMATION
  Report Type: Spontaneous
  Country: JP (occurrence: JP)
  Receive Date: 20201117
  Receipt Date: 20230125
  Transmission Date: 20230418
  Serious: Yes (Death, Life-Threatening, Other)
  Sender: FDA-Public Use
  Company Number: JP-LUPIN PHARMACEUTICALS INC.-2020-08834

PATIENT
  Age: 4 Decade
  Sex: Female
  Weight: 55 kg

DRUGS (8)
  1. QUETIAPINE FUMARATE [Interacting]
     Active Substance: QUETIAPINE FUMARATE
     Indication: Depression
     Dosage: UNK
     Route: 048
  2. QUETIAPINE FUMARATE [Interacting]
     Active Substance: QUETIAPINE FUMARATE
     Indication: Insomnia
     Dosage: 250 MILLIGRAM TOTAL
     Route: 048
     Dates: start: 2018
  3. ESCITALOPRAM [Interacting]
     Active Substance: ESCITALOPRAM OXALATE
     Indication: Depression
     Dosage: UNK
     Route: 048
  4. ESCITALOPRAM [Interacting]
     Active Substance: ESCITALOPRAM OXALATE
     Indication: Insomnia
     Dosage: 0.22 MILLIGRAM TOTAL
     Route: 048
     Dates: start: 2018
  5. ARIPIPRAZOLE [Suspect]
     Active Substance: ARIPIPRAZOLE
     Indication: Depression
     Dosage: UNK
     Route: 048
  6. ARIPIPRAZOLE [Suspect]
     Active Substance: ARIPIPRAZOLE
     Indication: Insomnia
     Dosage: 0.06 MILLIGRAM TOTAL
     Route: 048
     Dates: start: 2018
  7. FLUNITRAZEPAM [Suspect]
     Active Substance: FLUNITRAZEPAM
     Indication: Insomnia
     Dosage: UNK
     Route: 048
  8. FLUNITRAZEPAM [Suspect]
     Active Substance: FLUNITRAZEPAM
     Indication: Depression
     Dosage: 1.1 MILLIGRAM TOTAL
     Route: 048
     Dates: start: 2018

REACTIONS (8)
  - Psychomotor skills impaired [Fatal]
  - Somnolence [Fatal]
  - Drug interaction [Fatal]
  - Drowning [Fatal]
  - Electrocardiogram QT prolonged [Fatal]
  - Brain oedema [Fatal]
  - Toxicity to various agents [Fatal]
  - Pulmonary oedema [Fatal]

NARRATIVE: CASE EVENT DATE: 20180101
